FAERS Safety Report 25682053 (Version 1)
Quarter: 2025Q3

REPORT INFORMATION
  Report Type: Spontaneous
  Country: EU (occurrence: EU)
  Receive Date: 20250814
  Receipt Date: 20250814
  Transmission Date: 20251021
  Serious: Yes (Hospitalization)
  Sender: PFIZER
  Company Number: None

PATIENT
  Age: 26 Year
  Sex: Female

DRUGS (1)
  1. CLINDAMYCIN HYDROCHLORIDE [Suspect]
     Active Substance: CLINDAMYCIN HYDROCHLORIDE
     Indication: Chronic sinusitis
     Route: 048
     Dates: start: 20250708, end: 20250719

REACTIONS (2)
  - Rash maculo-papular [Recovering/Resolving]
  - Oral mucosal erythema [Recovering/Resolving]

NARRATIVE: CASE EVENT DATE: 20250719
